FAERS Safety Report 7323745-2 (Version None)
Quarter: 2011Q1

REPORT INFORMATION
  Report Type: 
  Country: None (occurrence: None)
  Receive Date: 20110301
  Receipt Date: 20110214
  Transmission Date: 20110831
  Serious: Yes (Life-Threatening)
  Sender: FDA-Public Use
  Company Number: JP-ELI_LILLY_AND_COMPANY-JP201102005696

PATIENT
  Sex: Female

DRUGS (2)
  1. ASPENON [Concomitant]
  2. PRASUGREL HYDROCHLORIDE [Suspect]
     Indication: ACUTE CORONARY SYNDROME
     Route: 048
     Dates: start: 20110211

REACTIONS (1)
  - ATRIOVENTRICULAR BLOCK COMPLETE [None]
